FAERS Safety Report 13416827 (Version 2)
Quarter: 2017Q2

REPORT INFORMATION
  Report Type: Report from Study
  Country: CA (occurrence: CA)
  Receive Date: 20170407
  Receipt Date: 20170424
  Transmission Date: 20170830
  Serious: Yes (Death, Hospitalization)
  Sender: FDA-Public Use
  Company Number: CA-JNJFOC-20170322957

PATIENT
  Age: 58 Year
  Sex: Male
  Weight: 54.3 kg

DRUGS (1)
  1. STELARA [Suspect]
     Active Substance: USTEKINUMAB
     Indication: CROHN^S DISEASE
     Route: 058
     Dates: start: 20161115, end: 20170321

REACTIONS (4)
  - Lymphoma [Fatal]
  - Histiocytosis haematophagic [Unknown]
  - Abdominal pain [Not Recovered/Not Resolved]
  - Neurogenic shock [Not Recovered/Not Resolved]

NARRATIVE: CASE EVENT DATE: 20170227
